FAERS Safety Report 5960966-5 (Version None)
Quarter: 2008Q4

REPORT INFORMATION
  Report Type: 
  Country: None (occurrence: None)
  Receive Date: 20081119
  Receipt Date: 20081107
  Transmission Date: 20090506
  Serious: No
  Sender: FDA-Public Use
  Company Number: US024998

PATIENT
  Age: 53 Year
  Sex: Female
  Weight: 65.7716 kg

DRUGS (5)
  1. FENTORA [Suspect]
     Indication: FIBROMYALGIA
     Dosage: 200 UG PRN BUCCAL
     Route: 002
     Dates: start: 20050101
  2. FENTORA [Suspect]
     Indication: GUILLAIN-BARRE SYNDROME
     Dosage: 200 UG PRN BUCCAL
     Route: 002
     Dates: start: 20050101
  3. MORPHINE [Concomitant]
  4. PEPCID [Concomitant]
  5. ESTRACE [Concomitant]

REACTIONS (3)
  - APPLICATION SITE IRRITATION [None]
  - DRUG PRESCRIBING ERROR [None]
  - MEDICATION ERROR [None]
